FAERS Safety Report 5013179-8 (Version None)
Quarter: 2006Q2

REPORT INFORMATION
  Report Type: 
  Country: None (occurrence: None)
  Receive Date: 20060530
  Receipt Date: 20060314
  Transmission Date: 20061013
  Serious: Yes (Other)
  Sender: FDA-Public Use
  Company Number: US-GLAXOSMITHKLINE-A0597544A

PATIENT
  Age: 36 Year
  Sex: Female
  Weight: 59.1 kg

DRUGS (3)
  1. WELLBUTRIN XL [Suspect]
     Indication: DEPRESSION
     Dosage: 150MG PER DAY
     Route: 048
     Dates: start: 20040301, end: 20050701
  2. AMBIEN [Concomitant]
     Indication: INSOMNIA
     Dosage: 5MG AT NIGHT
     Route: 048
     Dates: start: 20040301
  3. ORTHO EVRA [Concomitant]
     Indication: CONSTIPATION
     Dosage: 1PAT WEEKLY
     Route: 061
     Dates: start: 20030901, end: 20050701

REACTIONS (1)
  - HALLUCINATION, AUDITORY [None]
